FAERS Safety Report 17000077 (Version 1)
Quarter: 2019Q4

REPORT INFORMATION
  Report Type: Other
  Country: CA (occurrence: CA)
  Receive Date: 20191106
  Receipt Date: 20191106
  Transmission Date: 20200122
  Serious: Yes (Other)
  Sender: FDA-Public Use
  Company Number: CA-PFIZER INC-2019472246

PATIENT
  Age: 45 Year
  Sex: Male

DRUGS (6)
  1. GABAPENTIN. [Suspect]
     Active Substance: GABAPENTIN
     Dosage: 1200 MG, 1X/DAY
     Route: 065
  2. NYTOL [Interacting]
     Active Substance: DIPHENHYDRAMINE HYDROCHLORIDE
     Dosage: 400 MG, UNK
     Route: 048
  3. CLONAZEPAM. [Interacting]
     Active Substance: CLONAZEPAM
     Dosage: 4 MG, 1X/DAY
     Route: 065
  4. VALPROATE SEMISODIUM [Concomitant]
     Active Substance: DIVALPROEX SODIUM
     Dosage: UNK
     Route: 065
  5. NYTOL [Interacting]
     Active Substance: DIPHENHYDRAMINE HYDROCHLORIDE
     Dosage: 25 MG, 16 EVERY 1 DAY
     Route: 065
  6. CLOZAPINE. [Interacting]
     Active Substance: CLOZAPINE
     Dosage: 400 MG, 1X/DAY
     Route: 065

REACTIONS (8)
  - Neutrophil count decreased [Recovered/Resolved]
  - Drug interaction [Recovered/Resolved]
  - Neutropenia [Recovered/Resolved]
  - Overdose [Recovered/Resolved]
  - White blood cell count decreased [Recovered/Resolved]
  - Drug withdrawal syndrome [Recovered/Resolved]
  - Leukopenia [Recovered/Resolved]
  - Toxicity to various agents [Recovered/Resolved]
